APPROVED DRUG PRODUCT: MEROPENEM AND SODIUM CHLORIDE IN DUPLEX CONTAINER
Active Ingredient: MEROPENEM
Strength: 1GM/VIAL
Dosage Form/Route: POWDER;INTRAVENOUS
Application: N202106 | Product #002
Applicant: B BRAUN MEDICAL INC
Approved: Apr 30, 2015 | RLD: No | RS: No | Type: RX